FAERS Safety Report 23719204 (Version 1)
Quarter: 2024Q2

REPORT INFORMATION
  Report Type: Spontaneous
  Country: CN (occurrence: CN)
  Receive Date: 20240408
  Receipt Date: 20240408
  Transmission Date: 20240716
  Serious: Yes (Other)
  Sender: FDA-Public Use
  Company Number: CN-SA-SAC20240405000477

PATIENT
  Age: 60 Year
  Sex: Male
  Weight: 60 kg

DRUGS (1)
  1. OXALIPLATIN [Suspect]
     Active Substance: OXALIPLATIN
     Indication: Chemotherapy
     Dosage: 140 MG QD
     Route: 041
     Dates: start: 20240311, end: 20240311

REACTIONS (3)
  - Neurotoxicity [Recovering/Resolving]
  - Hypoaesthesia [Recovering/Resolving]
  - Paraesthesia [Recovering/Resolving]

NARRATIVE: CASE EVENT DATE: 20240311
